FAERS Safety Report 6573498-0 (Version None)
Quarter: 2010Q1

REPORT INFORMATION
  Report Type: 
  Country: None (occurrence: None)
  Receive Date: 20100208
  Receipt Date: 20100128
  Transmission Date: 20100710
  Serious: No
  Sender: FDA-Public Use
  Company Number: US-B.I. PHARMACEUTICALS,INC./RIDGEFIELD-2010-BP-00427BP

PATIENT
  Age: 69 Year
  Sex: Male
  Weight: 92.99 kg

DRUGS (6)
  1. MIRAPEX [Suspect]
     Indication: PARKINSON'S DISEASE
     Dosage: 3 MG
     Route: 048
     Dates: start: 20080101, end: 20100101
  2. WARFARIN SODIUM [Concomitant]
  3. CARBIDOPA LEVIDOPA [Concomitant]
     Dates: start: 20100106
  4. LISINOPRIL [Concomitant]
  5. SIMVASTATIN [Concomitant]
  6. OMEPRAZOLE [Concomitant]

REACTIONS (2)
  - COMPULSIVE SHOPPING [None]
  - GAMBLING [None]
